FAERS Safety Report 8264953-6 (Version None)
Quarter: 2012Q2

REPORT INFORMATION
  Report Type: 
  Country: None (occurrence: None)
  Receive Date: 20120406
  Receipt Date: 20120327
  Transmission Date: 20120825
  Serious: Yes (Hospitalization)
  Sender: FDA-Public Use
  Company Number: US-JNJFOC-20120314642

PATIENT
  Sex: Male
  Weight: 56.2 kg

DRUGS (6)
  1. REMICADE [Suspect]
     Indication: INFLAMMATORY BOWEL DISEASE
     Route: 042
     Dates: start: 20110118
  2. WELLBUTRIN [Suspect]
     Indication: PRODUCT USED FOR UNKNOWN INDICATION
  3. PREVACID [Concomitant]
  4. ALLEGRA [Concomitant]
  5. PRISTIQ [Concomitant]
  6. RITALIN [Concomitant]

REACTIONS (1)
  - PANCREATITIS ACUTE [None]
